FAERS Safety Report 9413302 (Version 2)
Quarter: 2013Q3

REPORT INFORMATION
  Report Type: Report from Study
  Country: JP (occurrence: JP)
  Receive Date: 20130722
  Receipt Date: 20130903
  Transmission Date: 20140515
  Serious: Yes (Other)
  Sender: FDA-Public Use
  Company Number: JP-NAPPMUNDI-GBR-2013-0013978

PATIENT
  Age: 84 Year
  Sex: Male

DRUGS (3)
  1. OXYCODONE HCL PR TABLET [Suspect]
     Indication: PRODUCT USED FOR UNKNOWN INDICATION
     Dosage: 40 MG, DAILY
     Route: 048
     Dates: start: 20111217, end: 20120210
  2. OXYCODONE HCL IR POWDER 0.5% [Suspect]
     Indication: PRODUCT USED FOR UNKNOWN INDICATION
     Dosage: 5 MG, DAILY
     Route: 048
     Dates: start: 20120127, end: 20120210
  3. OXYCODONE HCL IR POWDER 0.5% [Suspect]
     Dosage: 2.5 MG, DAILY
     Route: 048
     Dates: start: 20111218, end: 20120127

REACTIONS (3)
  - Delirium [Recovering/Resolving]
  - Vomiting [Recovering/Resolving]
  - Constipation [Not Recovered/Not Resolved]
